FAERS Safety Report 8393894-9 (Version None)
Quarter: 2012Q2

REPORT INFORMATION
  Report Type: 
  Country: None (occurrence: None)
  Receive Date: 20120524
  Receipt Date: 20120508
  Transmission Date: 20120825
  Serious: Yes (Hospitalization)
  Sender: FDA-Public Use
  Company Number: JPI-P-021225

PATIENT
  Age: 36 Year
  Sex: Female
  Weight: 122.0176 kg

DRUGS (17)
  1. XYREM [Suspect]
     Indication: CATAPLEXY
     Dosage: SEE IMAGE: ORAL
     Dates: start: 20120101, end: 20120101
  2. XYREM [Suspect]
     Indication: SLEEP DISORDER
     Dosage: SEE IMAGE: ORAL
     Dates: start: 20120101, end: 20120101
  3. XYREM [Suspect]
     Indication: CATAPLEXY
     Dosage: SEE IMAGE: ORAL
     Dates: start: 20101021
  4. XYREM [Suspect]
     Indication: SLEEP DISORDER
     Dosage: SEE IMAGE: ORAL
     Dates: start: 20101021
  5. XYREM [Suspect]
     Indication: CATAPLEXY
     Dosage: SEE IMAGE: ORAL
     Dates: start: 20120120, end: 20120101
  6. XYREM [Suspect]
     Indication: SLEEP DISORDER
     Dosage: SEE IMAGE: ORAL
     Dates: start: 20120120, end: 20120101
  7. XYREM [Suspect]
     Indication: CATAPLEXY
     Dosage: SEE IMAGE: ORAL
     Dates: start: 20120101
  8. XYREM [Suspect]
     Indication: SLEEP DISORDER
     Dosage: SEE IMAGE: ORAL
     Dates: start: 20120101
  9. ATENOLOL [Concomitant]
  10. ARMODAFINIL [Concomitant]
  11. DULOXETINE HYDROCHLORIDE [Concomitant]
  12. OMEPRAZOLE [Concomitant]
  13. AMPHETAMINE, DEXTROAMPHETAMINE MIXED SALTS [Concomitant]
  14. OXYCODONE HCL [Concomitant]
  15. PREGABALIN [Suspect]
     Indication: FIBROMYALGIA
  16. OXYMORPHONE HYDROCHLORIDE [Concomitant]
  17. TIZANIDINE [Concomitant]

REACTIONS (8)
  - FIBROMYALGIA [None]
  - DYSPHAGIA [None]
  - CONDITION AGGRAVATED [None]
  - DRY THROAT [None]
  - HEADACHE [None]
  - APHONIA [None]
  - DIZZINESS [None]
  - NAUSEA [None]
